FAERS Safety Report 5165967-5 (Version None)
Quarter: 2006Q4

REPORT INFORMATION
  Report Type: 
  Country: None (occurrence: None)
  Receive Date: 20061206
  Receipt Date: 20060914
  Transmission Date: 20070319
  Serious: Yes (Hospitalization)
  Sender: FDA-Public Use
  Company Number: FR-SANOFI-SYNTHELABO-A02200602348

PATIENT
  Sex: Female
  Weight: 47 kg

DRUGS (9)
  1. CYTARABINE [Concomitant]
     Route: 042
     Dates: start: 20060307, end: 20060307
  2. RITUXIMAB [Concomitant]
     Route: 042
     Dates: start: 20060306, end: 20060306
  3. ELOXATIN [Suspect]
     Indication: NON-HODGKIN'S LYMPHOMA
     Route: 042
     Dates: start: 20060307, end: 20060307
  4. NEUPOGEN [Concomitant]
     Indication: PREMEDICATION
     Route: 042
  5. B 26 [Concomitant]
     Indication: DRUG USE FOR UNKNOWN INDICATION
     Route: 042
     Dates: start: 20060306, end: 20060307
  6. PLITICAN [Concomitant]
     Route: 042
     Dates: start: 20060306, end: 20060307
  7. KYTRIL [Concomitant]
     Indication: PREMEDICATION
     Route: 042
     Dates: start: 20060306, end: 20060306
  8. POLARAMINE [Concomitant]
     Indication: PREMEDICATION
     Route: 042
     Dates: start: 20060306, end: 20060306
  9. DEXAMETHASONE [Concomitant]
     Indication: DRUG USE FOR UNKNOWN INDICATION
     Route: 042
     Dates: start: 20060306, end: 20060307

REACTIONS (1)
  - RENAL FAILURE ACUTE [None]
